FAERS Safety Report 6022308-9 (Version None)
Quarter: 2008Q4

REPORT INFORMATION
  Report Type: 
  Country: None (occurrence: None)
  Receive Date: 20081226
  Receipt Date: 20081226
  Transmission Date: 20090506
  Serious: No
  Sender: FDA-Public Use
  Company Number: None

PATIENT
  Sex: Female
  Weight: 7.87 kg

DRUGS (1)
  1. PREVACID [Suspect]
     Indication: COUGH
     Dosage: 1 MG/KG BID ORAL
     Route: 048

REACTIONS (2)
  - COW'S MILK INTOLERANCE [None]
  - DRUG INTOLERANCE [None]
